FAERS Safety Report 20493615 (Version 5)
Quarter: 2023Q4

REPORT INFORMATION
  Report Type: Report from Study
  Country: JP (occurrence: JP)
  Receive Date: 20220221
  Receipt Date: 20231204
  Transmission Date: 20240110
  Serious: No
  Sender: FDA-Public Use
  Company Number: JP-ASTELLAS-2022JP002960

PATIENT
  Age: 75 Year
  Sex: Male

DRUGS (1)
  1. ENFORTUMAB VEDOTIN [Suspect]
     Active Substance: ENFORTUMAB VEDOTIN
     Indication: Transitional cell carcinoma
     Dosage: 60 MG (1.0MG/KG), ONCE WEEKLY
     Route: 041
     Dates: start: 20211216, end: 20220217

REACTIONS (2)
  - Product use issue [Unknown]
  - Off label use [Unknown]
